FAERS Safety Report 8519345-9 (Version None)
Quarter: 2012Q3

REPORT INFORMATION
  Report Type: 
  Country: None (occurrence: None)
  Receive Date: 20120718
  Receipt Date: 20120713
  Transmission Date: 20120928
  Serious: Yes (Hospitalization)
  Sender: FDA-Public Use
  Company Number: CA-B.I. PHARMACEUTICALS,INC./RIDGEFIELD-2012-CN-01481CN

PATIENT
  Age: 71 Year
  Sex: Female

DRUGS (5)
  1. PRADAXA [Suspect]
     Indication: ATRIAL FIBRILLATION
     Dosage: 300 MG
     Dates: start: 20120506
  2. HYDROCHLOROTHIAZIDE [Concomitant]
  3. ACEBUTOLOL [Concomitant]
  4. CRESTOR [Concomitant]
  5. ZYLOPRIM [Concomitant]

REACTIONS (1)
  - CEREBRAL INFARCTION [None]
